FAERS Safety Report 25533995 (Version 2)
Quarter: 2025Q3

REPORT INFORMATION
  Report Type: Spontaneous
  Country: EU (occurrence: EU)
  Receive Date: 20250709
  Receipt Date: 20250818
  Transmission Date: 20251020
  Serious: Yes (Life-Threatening, Other)
  Sender: NOVARTIS
  Company Number: EU-002147023-NVSC2025DE107232

PATIENT
  Sex: Female
  Weight: 76 kg

DRUGS (1)
  1. SCEMBLIX [Suspect]
     Active Substance: ASCIMINIB HYDROCHLORIDE
     Indication: Chronic myeloid leukaemia
     Route: 065
     Dates: start: 2023

REACTIONS (2)
  - Malignant melanoma [Recovered/Resolved]
  - Second primary malignancy [Recovered/Resolved]
